FAERS Safety Report 12548375 (Version 1)
Quarter: 2016Q3

REPORT INFORMATION
  Report Type: Spontaneous
  Country: GB (occurrence: GB)
  Receive Date: 20160712
  Receipt Date: 20160712
  Transmission Date: 20161109
  Serious: Yes (Other)
  Sender: FDA-Public Use
  Company Number: GB-AUROBINDO-AUR-APL-2016-08591

PATIENT
  Age: 46 Year
  Sex: Female

DRUGS (11)
  1. THYROXINE [Concomitant]
     Active Substance: LEVOTHYROXINE
     Indication: HYPOTHYROIDISM
     Route: 065
  2. PAROXETINE. [Suspect]
     Active Substance: PAROXETINE
     Indication: DEPRESSION
     Dosage: 20 DF, ONCE A DAY (20 MG/10ML, 2X5ML SPOON DAILY)
     Route: 048
     Dates: start: 20020429
  3. DIAZEPAM. [Concomitant]
     Active Substance: DIAZEPAM
     Indication: PRODUCT USED FOR UNKNOWN INDICATION
     Route: 065
     Dates: start: 19900316
  4. PAROXETINE TABLET [Suspect]
     Active Substance: PAROXETINE
     Dosage: 20 MG, ONCE A DAY
     Route: 048
     Dates: start: 19990224, end: 20020411
  5. SEROXAT [Suspect]
     Active Substance: PAROXETINE HYDROCHLORIDE
     Indication: PRODUCT USED FOR UNKNOWN INDICATION
     Dosage: UNK
     Route: 065
     Dates: start: 1999, end: 2000
  6. PAROXETINE TABLET [Suspect]
     Active Substance: PAROXETINE
     Indication: DEPRESSION
     Dosage: 5 MG, ONCE A DAY
     Route: 065
     Dates: start: 20020610
  7. PAROXETINE TABLET [Suspect]
     Active Substance: PAROXETINE
     Dosage: 30 MG, ONCE A DAY
     Route: 048
     Dates: start: 19990319, end: 20011213
  8. CYCLOGEST [Concomitant]
     Active Substance: PROGESTERONE
     Indication: PRODUCT USED FOR UNKNOWN INDICATION
     Route: 065
  9. ESTRADERM [Concomitant]
     Active Substance: ESTRADIOL
     Indication: PRODUCT USED FOR UNKNOWN INDICATION
     Route: 065
  10. PROTHIADEN [Concomitant]
     Active Substance: DOTHIEPIN HYDROCHLORIDE
     Indication: PRODUCT USED FOR UNKNOWN INDICATION
     Route: 065
     Dates: start: 19881201
  11. PAXIL [Suspect]
     Active Substance: PAROXETINE HYDROCHLORIDE
     Indication: PRODUCT USED FOR UNKNOWN INDICATION
     Dosage: UNK
     Route: 065
     Dates: start: 1999, end: 2000

REACTIONS (36)
  - Dizziness [Unknown]
  - Emotional distress [Unknown]
  - Tearfulness [Unknown]
  - Pain in extremity [Unknown]
  - Nausea [Unknown]
  - Depression [Unknown]
  - Hyperhidrosis [Unknown]
  - Nightmare [Unknown]
  - Crying [Unknown]
  - Fear [Unknown]
  - Muscle contractions involuntary [Unknown]
  - Chronic fatigue syndrome [Unknown]
  - Headache [Unknown]
  - Fatigue [Unknown]
  - Irritability [Unknown]
  - Anger [Unknown]
  - Ill-defined disorder [Unknown]
  - Withdrawal syndrome [Unknown]
  - Mental impairment [Unknown]
  - Panic attack [Unknown]
  - Disturbance in attention [Unknown]
  - Paraesthesia [Unknown]
  - Vertigo [Unknown]
  - Tinnitus [Unknown]
  - Weight increased [Unknown]
  - Anxiety [Unknown]
  - Suicidal ideation [Unknown]
  - Mood swings [Unknown]
  - Somnolence [Unknown]
  - Sleep disorder [Unknown]
  - Night sweats [Unknown]
  - Gait disturbance [Unknown]
  - Vision blurred [Unknown]
  - Weight decreased [Unknown]
  - Insomnia [Unknown]
  - Dysarthria [Unknown]

NARRATIVE: CASE EVENT DATE: 20010302
